FAERS Safety Report 9478172 (Version 1)
Quarter: 2013Q3

REPORT INFORMATION
  Report Type: Spontaneous
  Country: CH (occurrence: CH)
  Receive Date: 20130827
  Receipt Date: 20130827
  Transmission Date: 20140515
  Serious: Yes (Other)
  Sender: FDA-Public Use
  Company Number: CH-PFIZER INC-2013241976

PATIENT
  Age: 28 Year
  Sex: Female

DRUGS (6)
  1. SALAZOPYRIN [Suspect]
     Indication: RHEUMATOID ARTHRITIS
     Dosage: 1500 MG, 1X/DAY
     Route: 048
     Dates: start: 201305, end: 20130605
  2. CELEBREX [Concomitant]
     Route: 048
  3. DAFALGAN [Concomitant]
     Dosage: 1 G, UNK
     Route: 048
  4. BUCCO-TANTUM [Concomitant]
     Route: 048
  5. LOCABIOTAL [Concomitant]
     Route: 048
  6. ANDREAFOL [Concomitant]
     Route: 048

REACTIONS (5)
  - Leukopenia [Recovered/Resolved]
  - Rash [Recovered/Resolved]
  - Pyrexia [Recovered/Resolved]
  - Odynophagia [Recovered/Resolved]
  - Ear pain [Recovered/Resolved]
